FAERS Safety Report 20623029 (Version 1)
Quarter: 2022Q1

REPORT INFORMATION
  Report Type: Spontaneous
  Country: US (occurrence: None)
  Receive Date: 20220322
  Receipt Date: 20220322
  Transmission Date: 20220424
  Serious: Yes (Hospitalization, Other)
  Sender: FDA-Public Use
  Company Number: 2022A113411

PATIENT
  Age: 66 Year
  Sex: Female

DRUGS (2)
  1. BUDESONIDE\FORMOTEROL\GLYCOPYRRONIUM [Suspect]
     Active Substance: BUDESONIDE\FORMOTEROL\GLYCOPYRRONIUM
     Indication: Chronic obstructive pulmonary disease
     Dosage: 160/9/4.8 MCG TWO PUFFS TWICE A DAY
     Route: 055
     Dates: start: 2021
  2. SYMBICORT [Suspect]
     Active Substance: BUDESONIDE\FORMOTEROL FUMARATE DIHYDRATE
     Indication: Chronic obstructive pulmonary disease
     Dosage: 160/4.5 MCG TWO PUFFS
     Route: 055
     Dates: end: 2021

REACTIONS (15)
  - COVID-19 [Recovering/Resolving]
  - Arthritis [Recovered/Resolved]
  - Pneumonitis [Unknown]
  - Hypertension [Recovering/Resolving]
  - Headache [Recovering/Resolving]
  - Blood iron decreased [Recovering/Resolving]
  - Asthenia [Recovering/Resolving]
  - White blood cell count decreased [Recovering/Resolving]
  - Cough [Recovering/Resolving]
  - Rhinorrhoea [Recovering/Resolving]
  - Fatigue [Recovering/Resolving]
  - Aortic valve stenosis [Not Recovered/Not Resolved]
  - Pneumonia [Unknown]
  - Delirium [Unknown]
  - Wrong technique in device usage process [Unknown]

NARRATIVE: CASE EVENT DATE: 20210101
